FAERS Safety Report 5750448-8 (Version None)
Quarter: 2008Q2

REPORT INFORMATION
  Report Type: 
  Country: None (occurrence: None)
  Receive Date: 20080528
  Receipt Date: 20070913
  Transmission Date: 20081010
  Serious: No
  Sender: FDA-Public Use
  Company Number: US-KINGPHARMUSA00001-K200701185

PATIENT

DRUGS (12)
  1. AVINZA [Suspect]
     Indication: PAIN
     Dosage: 60 MG, QD
     Route: 048
     Dates: start: 20010101, end: 20070601
  2. AVINZA [Suspect]
     Dosage: 30 MG, QD
     Route: 048
     Dates: start: 20070601
  3. SOMA [Concomitant]
     Dosage: 350 MG, TID
  4. GUAIFENEX      /00048001/ [Concomitant]
     Dosage: 600/120 BID, PRN
  5. IMITREX      /01044801/ [Concomitant]
     Dosage: 100 MG, PRN
  6. TOPAMAX [Concomitant]
     Dosage: 100 MG, BID
  7. ALLEGRA [Concomitant]
     Dosage: 60 MG, BID
  8. POTASSIUM CHLORIDE [Concomitant]
     Dosage: 99 MG, 2 AT HS
  9. STOOL SOFTENER [Concomitant]
     Dosage: 2 , AT BEDTIME
  10. ALBUTEROL [Concomitant]
  11. DEPO-PROVERA [Concomitant]
     Dosage: 150 MG, EVERY 90 DAYS
  12. VITAMINS [Concomitant]

REACTIONS (4)
  - DYSPNOEA [None]
  - MUSCLE SPASMS [None]
  - RASH [None]
  - URTICARIA [None]
